FAERS Safety Report 7386614-8 (Version None)
Quarter: 2011Q1

REPORT INFORMATION
  Report Type: 
  Country: None (occurrence: None)
  Receive Date: 20110329
  Receipt Date: 20110329
  Transmission Date: 20110831
  Serious: No
  Sender: FDA-Public Use
  Company Number: None

PATIENT
  Age: 53 Year
  Sex: Female
  Weight: 49.8957 kg

DRUGS (2)
  1. METHOCARBAMOL [Suspect]
     Indication: INFLAMMATION
     Dosage: ONE TABLET 4 HOURS AS NEEDED PO
     Route: 048
     Dates: start: 20110310, end: 20110327
  2. METHOCARBAMOL [Suspect]
     Indication: MUSCLE SPASMS
     Dosage: ONE TABLET 4 HOURS AS NEEDED PO
     Route: 048
     Dates: start: 20110310, end: 20110327

REACTIONS (1)
  - ABNORMAL DREAMS [None]
